FAERS Safety Report 4841868-4 (Version None)
Quarter: 2005Q4

REPORT INFORMATION
  Report Type: 
  Country: None (occurrence: None)
  Receive Date: 20051130
  Receipt Date: 20050920
  Transmission Date: 20060501
  Serious: Yes (Disabling)
  Sender: FDA-Public Use
  Company Number: US-GLAXOSMITHKLINE-A0575055A

PATIENT
  Age: 17 Year
  Sex: Male

DRUGS (2)
  1. WELLBUTRIN [Suspect]
     Indication: DEPRESSION
     Dosage: 150MG PER DAY
     Route: 048
     Dates: start: 20050801, end: 20050901
  2. NO CONCURRENT MEDICATION [Concomitant]

REACTIONS (5)
  - ARTHRALGIA [None]
  - MYALGIA [None]
  - PRURITUS [None]
  - RASH [None]
  - SWELLING [None]
